FAERS Safety Report 25883715 (Version 1)
Quarter: 2025Q4

REPORT INFORMATION
  Report Type: Spontaneous
  Country: EU (occurrence: None)
  Receive Date: 20251006
  Receipt Date: 20251006
  Transmission Date: 20260118
  Serious: Yes (Hospitalization, Other)
  Sender: ACS DOBFAR
  Company Number: None

PATIENT
  Sex: Male
  Weight: 79 kg

DRUGS (3)
  1. ENVARSUS XR [Suspect]
     Active Substance: TACROLIMUS
     Indication: Prophylaxis against transplant rejection
     Route: 048
     Dates: start: 2021
  2. VFEND [Interacting]
     Active Substance: VORICONAZOLE
     Indication: Fungal infection
     Route: 042
     Dates: start: 20250729, end: 20250730
  3. ERTAPENEM SODIUM [Interacting]
     Active Substance: ERTAPENEM SODIUM
     Indication: Bacteraemia
     Route: 042
     Dates: start: 20250723, end: 20250804

REACTIONS (4)
  - Toxic encephalopathy [Recovered/Resolved]
  - Drug interaction [Recovered/Resolved]
  - Overdose [Recovered/Resolved]
  - Off label use [Recovered/Resolved]

NARRATIVE: CASE EVENT DATE: 20250723
